FAERS Safety Report 4480411-9 (Version None)
Quarter: 2004Q4

REPORT INFORMATION
  Report Type: 
  Country: None (occurrence: None)
  Receive Date: 20041018
  Receipt Date: 20041011
  Transmission Date: 20050328
  Serious: Yes (Other)
  Sender: FDA-Public Use
  Company Number: US-JNJFOC-20041003217

PATIENT
  Age: 66 Year
  Sex: Female

DRUGS (5)
  1. TYLENOL ARTHRITIS (ACETAMINOPHEN) GELTABS [Suspect]
     Indication: ARTHRITIS
     Dosage: 1300 MG, 1 IN 1 DAY, ORAL
     Route: 048
     Dates: start: 20040930, end: 20040930
  2. TYLENOL ARTHRITIS (ACETAMINOPHEN) GELTABS [Suspect]
     Indication: ARTHRITIS
     Dosage: 1300 MG, 1 IN 1 DAY, ORAL
     Route: 048
     Dates: start: 20041005, end: 20041005
  3. HYDROCHLOROTHIAZIDE [Concomitant]
  4. LISINOPRIL [Concomitant]
  5. HYOSCYAMINE (HYOSCYAMINE) [Concomitant]

REACTIONS (7)
  - DYSPHAGIA [None]
  - DYSPNOEA [None]
  - FEELING HOT [None]
  - PAIN [None]
  - PRURITUS [None]
  - RASH ERYTHEMATOUS [None]
  - TREMOR [None]
